FAERS Safety Report 7401713-X (Version None)
Quarter: 2011Q1

REPORT INFORMATION
  Report Type: 
  Country: None (occurrence: None)
  Receive Date: 20110329
  Receipt Date: 20060606
  Transmission Date: 20110831
  Serious: Yes (Other)
  Sender: FDA-Public Use
  Company Number: LEO-2011-00277

PATIENT
  Age: 29 Year
  Sex: Female

DRUGS (5)
  1. FOLIC ACID [Concomitant]
  2. CLOBAZAM (CLOBAZAM) [Concomitant]
  3. INNOHEP [Suspect]
     Indication: THROMBOSIS PROPHYLAXIS
     Dosage: 10000 IU (10000 IU,1 IN 1 D) ; 12000 IU (6000 IU,2 IN 1 D)
     Dates: start: 20020619, end: 20030204
  4. INNOHEP [Suspect]
     Indication: THROMBOSIS PROPHYLAXIS
     Dosage: 10000 IU (10000 IU,1 IN 1 D) ; 12000 IU (6000 IU,2 IN 1 D)
     Dates: start: 20020611, end: 20020619
  5. LAMOTRIGINE [Concomitant]

REACTIONS (3)
  - CAESAREAN SECTION [None]
  - DRUG EXPOSURE DURING PREGNANCY [None]
  - GRAND MAL CONVULSION [None]
